FAERS Safety Report 18745928 (Version 1)
Quarter: 2021Q1

REPORT INFORMATION
  Report Type: Not Available
  Country: None (occurrence: None)
  Receive Date: 20210115
  Receipt Date: 20210115
  Transmission Date: 20210419
  Serious: Yes (Other)
  Sender: FDA-Public Use
  Company Number: US-AKORN-159438

PATIENT
  Age: 18 Year
  Sex: Female

DRUGS (1)
  1. MYORISAN [Suspect]
     Active Substance: ISOTRETINOIN

REACTIONS (3)
  - Off label use [Recovered/Resolved]
  - Drug exposure before pregnancy [Not Recovered/Not Resolved]
  - Vaginal haemorrhage [Recovered/Resolved]
